FAERS Safety Report 6821650-9 (Version None)
Quarter: 2010Q3

REPORT INFORMATION
  Report Type: 
  Country: None (occurrence: None)
  Receive Date: 20100707
  Receipt Date: 20090603
  Transmission Date: 20110219
  Serious: Yes (Other)
  Sender: FDA-Public Use
  Company Number: US-PFIZER INC-2009175733

PATIENT
  Sex: Female
  Weight: 74.842 kg

DRUGS (3)
  1. ZOLOFT [Suspect]
  2. METFORMIN [Concomitant]
     Dosage: UNK
  3. CARDIOVASCULAR SYSTEM DRUGS [Concomitant]
     Dosage: UNK

REACTIONS (1)
  - SENSORY DISTURBANCE [None]
